FAERS Safety Report 10101491 (Version 1)
Quarter: 2014Q2

REPORT INFORMATION
  Report Type: Spontaneous
  Country: GB (occurrence: GB)
  Receive Date: 20140424
  Receipt Date: 20140424
  Transmission Date: 20141212
  Serious: Yes (Hospitalization)
  Sender: FDA-Public Use
  Company Number: GB-ASTRAZENECA-2014SE26432

PATIENT
  Age: 61 Year
  Sex: Male

DRUGS (5)
  1. BRILIQUE [Suspect]
     Indication: ACUTE CORONARY SYNDROME
     Route: 048
     Dates: end: 2014
  2. ASPIRIN [Suspect]
     Indication: ACUTE CORONARY SYNDROME
     Route: 048
     Dates: start: 20140107, end: 20140303
  3. ATORVASTATIN [Concomitant]
     Indication: HYPERLIPIDAEMIA
     Route: 048
     Dates: start: 20140107
  4. BISOPROLOL [Concomitant]
     Indication: ACUTE CORONARY SYNDROME
     Route: 048
     Dates: start: 20140107
  5. PERINDOPRIL [Concomitant]
     Indication: ACUTE CORONARY SYNDROME
     Route: 048
     Dates: start: 20140107

REACTIONS (4)
  - Abdominal distension [Unknown]
  - Dyspnoea exertional [Recovered/Resolved]
  - Gastritis [Recovered/Resolved]
  - Rash maculo-papular [Unknown]
